FAERS Safety Report 21956668 (Version 1)
Quarter: 2023Q1

REPORT INFORMATION
  Report Type: Spontaneous
  Country: CA (occurrence: None)
  Receive Date: 20230206
  Receipt Date: 20230206
  Transmission Date: 20230418
  Serious: Yes (Other)
  Sender: FDA-Public Use
  Company Number: CA-ROCHE-3276964

PATIENT
  Age: 73 Year
  Sex: Male

DRUGS (13)
  1. RUXIENCE [Suspect]
     Active Substance: RITUXIMAB-PVVR
     Indication: Cryoglobulinaemia
     Route: 065
  2. MYCOPHENOLATE MOFETIL [Suspect]
     Active Substance: MYCOPHENOLATE MOFETIL
     Indication: Product used for unknown indication
     Route: 065
     Dates: start: 201903
  3. CALCIUM [Concomitant]
     Active Substance: CALCIUM
  4. GABAPENTIN [Concomitant]
     Active Substance: GABAPENTIN
  5. LINAGLIPTIN [Concomitant]
     Active Substance: LINAGLIPTIN
  6. METFORMIN [Concomitant]
     Active Substance: METFORMIN HYDROCHLORIDE
  7. PREDNISOLONE ACETATE [Concomitant]
     Active Substance: PREDNISOLONE ACETATE
  8. RISEDRONATE SODIUM [Concomitant]
     Active Substance: RISEDRONATE SODIUM
  9. PREDNISOLONE [Concomitant]
     Active Substance: PREDNISOLONE
  10. SEPTRA DS [Concomitant]
     Active Substance: SULFAMETHOXAZOLE\TRIMETHOPRIM
  11. TENOFOVIR [Concomitant]
     Active Substance: TENOFOVIR
  12. TYLENOL [Concomitant]
     Active Substance: ACETAMINOPHEN
  13. CHOLECALCIFEROL [Concomitant]
     Active Substance: CHOLECALCIFEROL

REACTIONS (3)
  - Mononeuropathy multiplex [Unknown]
  - Off label use [Unknown]
  - Dyspnoea [Unknown]
